FAERS Safety Report 8779245 (Version 1)
Quarter: 2012Q4

REPORT INFORMATION
  Report Type: 
  Country: MX (occurrence: MX)
  Receive Date: 20120912
  Receipt Date: 20120912
  Transmission Date: 20130627
  Serious: Yes (Other)
  Sender: FDA-Public Use
  Company Number: MX-BRISTOL-MYERS SQUIBB COMPANY-16928475

PATIENT
  Age: 57 Year
  Sex: Female
  Weight: 88 kg

DRUGS (5)
  1. COAPROVEL [Suspect]
     Indication: HYPERTENSION
     Dosage: 1df=1 tablet
     Route: 048
     Dates: start: 2006
  2. CONTROLIP [Concomitant]
     Indication: HYPERCHOLESTEROLAEMIA
     Dosage: Tabs
     Route: 048
     Dates: start: 2002
  3. HIDROSMIN [Concomitant]
     Indication: DEEP VEIN THROMBOSIS
     Dosage: Tabs
     Route: 048
     Dates: start: 2005
  4. ASPIRINA [Concomitant]
     Indication: MYOCARDIAL ISCHAEMIA
     Dosage: Tabs
     Route: 048
     Dates: start: 2005
  5. ENALAPRIL [Concomitant]
     Indication: HYPERTROPHIC CARDIOMYOPATHY
     Dosage: 1df=1 tablet
     Route: 048
     Dates: start: 2006

REACTIONS (2)
  - Patella fracture [Recovering/Resolving]
  - Fall [Recovering/Resolving]
